FAERS Safety Report 25576004 (Version 1)
Quarter: 2025Q3

REPORT INFORMATION
  Report Type: Spontaneous
  Country: US (occurrence: US)
  Receive Date: 20250718
  Receipt Date: 20250718
  Transmission Date: 20251021
  Serious: No
  Sender: SANOFI AVENTIS
  Company Number: US-SANOFI-02585962

PATIENT
  Sex: Female
  Weight: 61.68 kg

DRUGS (2)
  1. DUPIXENT [Suspect]
     Active Substance: DUPILUMAB
     Indication: Chronic spontaneous urticaria
     Dates: start: 20250709
  2. XOLAIR [Concomitant]
     Active Substance: OMALIZUMAB
     Dosage: UNK UNK, QOW

REACTIONS (5)
  - Periorbital swelling [Unknown]
  - Lip swelling [Unknown]
  - Condition aggravated [Unknown]
  - Condition aggravated [Unknown]
  - Product use in unapproved indication [Unknown]

NARRATIVE: CASE EVENT DATE: 20250709
